FAERS Safety Report 14580366 (Version 1)
Quarter: 2018Q1

REPORT INFORMATION
  Report Type: Spontaneous
  Country: IT (occurrence: IT)
  Receive Date: 20180228
  Receipt Date: 20180228
  Transmission Date: 20180509
  Serious: Yes (Hospitalization)
  Sender: FDA-Public Use
  Company Number: IT-CIPLA LTD.-2018IT06273

PATIENT

DRUGS (6)
  1. SERTRALINE [Suspect]
     Active Substance: SERTRALINE HYDROCHLORIDE
     Indication: PRODUCT USED FOR UNKNOWN INDICATION
     Dosage: 6 DF, IN TOTAL
     Route: 048
     Dates: start: 20161018, end: 20161018
  2. TAVOR (LORAZEPAM) [Suspect]
     Active Substance: LORAZEPAM
     Indication: PRODUCT USED FOR UNKNOWN INDICATION
     Dosage: 16 DF, IN TOTAL
     Route: 048
     Dates: start: 20161018, end: 20161018
  3. OLANZAPINE. [Suspect]
     Active Substance: OLANZAPINE
     Indication: PRODUCT USED FOR UNKNOWN INDICATION
     Dosage: 7 DF, IN TOTAL
     Route: 048
     Dates: start: 20161018, end: 20161018
  4. QUETIAPINE. [Suspect]
     Active Substance: QUETIAPINE
     Indication: PRODUCT USED FOR UNKNOWN INDICATION
     Dosage: 10 DF, IN TOTAL
     Route: 048
     Dates: start: 20161018, end: 20161018
  5. VALDORM                            /00246102/ [Suspect]
     Active Substance: FLURAZEPAM HYDROCHLORIDE
     Indication: PRODUCT USED FOR UNKNOWN INDICATION
     Dosage: 30 DF, IN TOTAL
     Route: 048
     Dates: start: 20161018, end: 20161018
  6. TALOFEN [Suspect]
     Active Substance: PROMAZINE HYDROCHLORIDE
     Indication: PRODUCT USED FOR UNKNOWN INDICATION
     Dosage: UNK
     Route: 048
     Dates: start: 20161018, end: 20161018

REACTIONS (4)
  - Intentional self-injury [Unknown]
  - Bradyphrenia [Unknown]
  - Drug abuse [Unknown]
  - Communication disorder [Unknown]

NARRATIVE: CASE EVENT DATE: 20161018
